FAERS Safety Report 5336846-5 (Version None)
Quarter: 2007Q2

REPORT INFORMATION
  Report Type: 
  Country: None (occurrence: None)
  Receive Date: 20070529
  Receipt Date: 20070521
  Transmission Date: 20071010
  Serious: Yes (Death, Life-Threatening, Hospitalization, Other)
  Sender: FDA-Public Use
  Company Number: GB-JNJFOC-20070505543

PATIENT
  Sex: Male
  Weight: 85 kg

DRUGS (9)
  1. REMICADE [Suspect]
     Indication: RHEUMATOID ARTHRITIS
     Route: 042
  2. PREDNISOLONE [Concomitant]
  3. ALENDRONATE SODIUM [Concomitant]
  4. BENDROFLUAZIDE [Concomitant]
  5. CO-PROXAMOL [Concomitant]
  6. INDOCID [Concomitant]
  7. PAROXATINE [Concomitant]
  8. RANITIDINE [Concomitant]
  9. VISCOTEARS [Concomitant]

REACTIONS (1)
  - MALIGNANT MELANOMA OF SITES OTHER THAN SKIN [None]
